FAERS Safety Report 14484009 (Version 3)
Quarter: 2018Q1

REPORT INFORMATION
  Report Type: Report from Study
  Country: US (occurrence: US)
  Receive Date: 20180205
  Receipt Date: 20180312
  Transmission Date: 20180509
  Serious: Yes (Other)
  Sender: FDA-Public Use
  Company Number: US-AEGERION PHARMACEUTICAL, INC-AEGR003572

PATIENT
  Sex: Female
  Weight: 61.22 kg

DRUGS (1)
  1. JUXTAPID [Suspect]
     Active Substance: LOMITAPIDE MESYLATE
     Indication: TYPE IIA HYPERLIPIDAEMIA
     Dosage: 5 MG, QD (AT BEDTIME)
     Route: 048
     Dates: start: 20130912

REACTIONS (1)
  - Back disorder [Unknown]
